FAERS Safety Report 9501527 (Version 1)
Quarter: 2013Q3

REPORT INFORMATION
  Report Type: Spontaneous
  Country: CA (occurrence: CA)
  Receive Date: 20130905
  Receipt Date: 20130905
  Transmission Date: 20140515
  Serious: Yes (Other)
  Sender: FDA-Public Use
  Company Number: CA-BRISTOL-MYERS SQUIBB COMPANY-19210913

PATIENT
  Sex: Male

DRUGS (4)
  1. ONGLYZA TABS 2.5 MG [Suspect]
  2. LANOXIN [Concomitant]
  3. LASIX [Concomitant]
  4. METFORMIN [Concomitant]

REACTIONS (1)
  - Cardiac failure congestive [Unknown]
